FAERS Safety Report 20869192 (Version 1)
Quarter: 2022Q2

REPORT INFORMATION
  Report Type: Spontaneous
  Country: US (occurrence: None)
  Receive Date: 20220523
  Receipt Date: 20220523
  Transmission Date: 20220721
  Serious: No
  Sender: FDA-Public Use
  Company Number: None

PATIENT

DRUGS (2)
  1. EPINEPHRINE [Suspect]
     Active Substance: EPINEPHRINE
     Dosage: OTHER STRENGTH : USP 0.1 MG/10 ML;?ROUTE: INJECTABLE
     Route: 058
  2. EPINEPHRINE [Suspect]
     Active Substance: EPINEPHRINE
     Dosage: OTHER STRENGTH : USP 0.1 MG/10 ML;?

REACTIONS (2)
  - Intercepted product storage error [None]
  - Product packaging confusion [None]
